FAERS Safety Report 25700605 (Version 1)
Quarter: 2025Q3

REPORT INFORMATION
  Report Type: Spontaneous
  Country: EG (occurrence: EG)
  Receive Date: 20250819
  Receipt Date: 20250819
  Transmission Date: 20251020
  Serious: Yes (Hospitalization, Other)
  Sender: ASCENT PHARMACEUTICALS INC
  Company Number: EG-ASCENT-2025ASLIT00184

PATIENT
  Age: 36 Year
  Sex: Female

DRUGS (3)
  1. IBUPROFEN [Suspect]
     Active Substance: IBUPROFEN
     Indication: Abdominal pain
     Route: 042
  2. IBUPROFEN [Suspect]
     Active Substance: IBUPROFEN
     Indication: Drug therapy
  3. IBUPROFEN [Suspect]
     Active Substance: IBUPROFEN
     Indication: Drug therapy

REACTIONS (3)
  - Embolia cutis medicamentosa [Recovered/Resolved]
  - Product use issue [Unknown]
  - Incorrect product formulation administered [Unknown]
